FAERS Safety Report 12828649 (Version 1)
Quarter: 2016Q4

REPORT INFORMATION
  Report Type: Spontaneous
  Country: US (occurrence: US)
  Receive Date: 20161007
  Receipt Date: 20161007
  Transmission Date: 20170207
  Serious: No
  Sender: FDA-Public Use
  Company Number: US-SA-2015SA211162

PATIENT
  Age: 70 Year
  Sex: Female

DRUGS (13)
  1. ORENCIA [Concomitant]
     Active Substance: ABATACEPT
  2. ACIPHEX [Concomitant]
     Active Substance: RABEPRAZOLE SODIUM
  3. DITROPAN [Concomitant]
     Active Substance: OXYBUTYNIN CHLORIDE
  4. RAYOS [Concomitant]
     Active Substance: PREDNISONE
  5. BACLOFEN. [Concomitant]
     Active Substance: BACLOFEN
  6. METHOTREXATE. [Concomitant]
     Active Substance: METHOTREXATE
  7. BYSTOLIC [Concomitant]
     Active Substance: NEBIVOLOL HYDROCHLORIDE
  8. ELAVIL [Concomitant]
     Active Substance: AMITRIPTYLINE HYDROCHLORIDE
  9. AUBAGIO [Suspect]
     Active Substance: TERIFLUNOMIDE
     Indication: MULTIPLE SCLEROSIS
     Route: 048
  10. CARDIZEM LA [Concomitant]
     Active Substance: DILTIAZEM HYDROCHLORIDE
  11. DIOVAN [Concomitant]
     Active Substance: VALSARTAN
  12. CYMBALTA [Concomitant]
     Active Substance: DULOXETINE HYDROCHLORIDE
  13. LYRICA [Concomitant]
     Active Substance: PREGABALIN

REACTIONS (1)
  - Tooth infection [Unknown]
